FAERS Safety Report 4649780-0 (Version None)
Quarter: 2005Q2

REPORT INFORMATION
  Report Type: 
  Country: None (occurrence: None)
  Receive Date: 20050502
  Receipt Date: 20040924
  Transmission Date: 20051028
  Serious: Yes (Hospitalization)
  Sender: FDA-Public Use
  Company Number: PHEH2004US10334

PATIENT
  Age: 52 Year
  Sex: Male

DRUGS (11)
  1. CALCIUM GLUCONATE [Concomitant]
  2. ENOXAPARIN SODIUM [Concomitant]
  3. PEGFILGRASTIM [Concomitant]
  4. COMPAZINE [Concomitant]
  5. HYDROCODONE BITARTRATE [Concomitant]
  6. CARBOPLATIN [Concomitant]
  7. TAXOL [Concomitant]
  8. NEUTRA-PHOS [Concomitant]
  9. ZOMETA [Suspect]
     Indication: METASTASES TO BONE
     Dosage: 4 MG, QD
     Route: 042
     Dates: start: 20040921, end: 20040923
  10. LOVENOX [Concomitant]
     Indication: PROPHYLAXIS
  11. ANALGESICS [Concomitant]

REACTIONS (5)
  - BLOOD MAGNESIUM INCREASED [None]
  - HYPOALBUMINAEMIA [None]
  - HYPOCALCAEMIA [None]
  - HYPOPHOSPHATAEMIA [None]
  - MEDICATION ERROR [None]
